FAERS Safety Report 8609021-6 (Version None)
Quarter: 2012Q3

REPORT INFORMATION
  Report Type: 
  Country: None (occurrence: None)
  Receive Date: 20120821
  Receipt Date: 20120815
  Transmission Date: 20120928
  Serious: Yes (Life-Threatening)
  Sender: FDA-Public Use
  Company Number: GB-GLAXOSMITHKLINE-B0822884A

PATIENT
  Age: 46 Year
  Sex: Male
  Weight: 116 kg

DRUGS (10)
  1. ASPIRIN [Concomitant]
  2. CALCIUM CARBONATE [Concomitant]
  3. OMEPRAZOLE [Concomitant]
  4. PREDNISOLONE [Concomitant]
  5. SIMVASTATIN [Concomitant]
  6. AZATHIOPRINE SODIUM [Concomitant]
  7. CEFUROXIME [Suspect]
     Indication: SURGERY
     Route: 042
     Dates: start: 20120803, end: 20120803
  8. PYRIDOSTIGMINE BROMIDE [Concomitant]
  9. GENERAL ANAESTHETIC [Concomitant]
  10. PERINDOPRIL ERBUMINE [Concomitant]

REACTIONS (1)
  - ANAPHYLACTIC SHOCK [None]
